FAERS Safety Report 9451454 (Version 4)
Quarter: 2016Q2

REPORT INFORMATION
  Report Type: Report from Study
  Country: US (occurrence: US)
  Receive Date: 20130809
  Receipt Date: 20160603
  Transmission Date: 20160815
  Serious: Yes (Other)
  Sender: FDA-Public Use
  Company Number: US-ROCHE-1259896

PATIENT
  Age: 54 Year
  Sex: Female

DRUGS (26)
  1. ACETAMINOPHEN/HYDROCODONE [Concomitant]
     Active Substance: ACETAMINOPHEN\HYDROCODONE
     Dosage: 5/500 MG 1 TABLET Q DAY PRN
     Route: 065
  2. XOLAIR [Suspect]
     Active Substance: OMALIZUMAB
     Indication: ASTHMA
     Route: 058
  3. PREDNISONE. [Suspect]
     Active Substance: PREDNISONE
     Indication: PRODUCT USED FOR UNKNOWN INDICATION
     Route: 065
  4. BROVANA [Concomitant]
     Active Substance: ARFORMOTEROL TARTRATE
     Route: 065
  5. GABAPENTIN. [Concomitant]
     Active Substance: GABAPENTIN
  6. XOPENEX [Concomitant]
     Active Substance: LEVALBUTEROL HYDROCHLORIDE
     Dosage: 1-2 EVERY 12 HOURS
     Route: 065
  7. XOPENEX [Concomitant]
     Active Substance: LEVALBUTEROL HYDROCHLORIDE
     Dosage: 0.3 MG/3 ML VIA NEBULIZER PRN
     Route: 065
  8. CARTIA (UNITED STATES) [Concomitant]
     Dosage: 1 TAB QID
     Route: 065
  9. PROMETHAZINE WITH CODEINE [Concomitant]
     Active Substance: CODEINE PHOSPHATE\PROMETHAZINE HYDROCHLORIDE
     Dosage: 1-2 TSP PRN UP TO 6 TIMES DAILY
     Route: 048
  10. FIORICET [Concomitant]
     Active Substance: ACETAMINOPHEN\BUTALBITAL\CAFFEINE
  11. XOLAIR [Suspect]
     Active Substance: OMALIZUMAB
     Indication: ASTHMA
     Route: 058
  12. ACCOLATE [Concomitant]
     Active Substance: ZAFIRLUKAST
     Dosage: 2 QID
     Route: 065
  13. TOPAMAX [Concomitant]
     Active Substance: TOPIRAMATE
     Dosage: 2  QID
     Route: 065
  14. ZITHROMAX [Concomitant]
     Active Substance: AZITHROMYCIN DIHYDRATE
  15. LEVEMIR [Concomitant]
     Active Substance: INSULIN DETEMIR
     Dosage: 22 UNITS BEFORE BED
     Route: 065
  16. AUGMENTIN [Concomitant]
     Active Substance: AMOXICILLIN\CLAVULANATE POTASSIUM
     Route: 065
  17. XOLAIR [Suspect]
     Active Substance: OMALIZUMAB
     Indication: RESTRICTIVE PULMONARY DISEASE
     Route: 058
  18. PREDNISONE. [Suspect]
     Active Substance: PREDNISONE
     Route: 065
  19. ATROVENT [Concomitant]
     Active Substance: IPRATROPIUM BROMIDE
     Dosage: 1-2 EVERY 12 HOURS
     Route: 065
  20. METFORMIN [Concomitant]
     Active Substance: METFORMIN HYDROCHLORIDE
     Dosage: 1 TAB QID
     Route: 048
  21. THEOPHYLLINE ERT [Concomitant]
     Route: 065
     Dates: start: 20130802
  22. FLUOXETINE [Concomitant]
     Active Substance: FLUOXETINE HYDROCHLORIDE
     Route: 065
     Dates: start: 20131009
  23. KLOR-CON [Concomitant]
     Active Substance: POTASSIUM CHLORIDE
     Route: 065
     Dates: start: 20131009
  24. ONGLYZA [Concomitant]
     Active Substance: SAXAGLIPTIN HYDROCHLORIDE
     Dosage: 1 QID
     Route: 065
  25. AZYTER [Concomitant]
     Active Substance: AZITHROMYCIN ANHYDROUS
     Dosage: 1 QID
     Route: 065
  26. SPIRIVA [Concomitant]
     Active Substance: TIOTROPIUM BROMIDE MONOHYDRATE
     Dosage: 1 PUFF BID
     Route: 065

REACTIONS (21)
  - Depression [Unknown]
  - Bronchitis [Unknown]
  - Glomerular filtration rate abnormal [Unknown]
  - Vaginal infection [Unknown]
  - Dyspnoea [Unknown]
  - Total lung capacity decreased [Unknown]
  - Weight increased [Unknown]
  - Urinary tract infection [Unknown]
  - Heart rate increased [Unknown]
  - Blood urea abnormal [Unknown]
  - Blood albumin abnormal [Unknown]
  - Oedema [Unknown]
  - Fatigue [Unknown]
  - Feeling abnormal [Unknown]
  - Lung disorder [Unknown]
  - Exercise tolerance decreased [Unknown]
  - Sleep apnoea syndrome [Unknown]
  - Upper respiratory tract infection [Unknown]
  - Chest pain [Unknown]
  - Renal pain [Unknown]
  - Headache [Unknown]

NARRATIVE: CASE EVENT DATE: 20130701
